FAERS Safety Report 7568863-9 (Version None)
Quarter: 2011Q2

REPORT INFORMATION
  Report Type: 
  Country: None (occurrence: None)
  Receive Date: 20110623
  Receipt Date: 20110620
  Transmission Date: 20111010
  Serious: Yes (Other)
  Sender: FDA-Public Use
  Company Number: DK-PFIZER INC-2011125614

PATIENT
  Age: 47 Year
  Sex: Female

DRUGS (6)
  1. MORPHINE SULFATE [Suspect]
     Dosage: UNK
  2. DOLOPROCT [Suspect]
     Dosage: UNK
  3. IBUPROFEN [Suspect]
     Dosage: UNK
  4. NEXIUM [Suspect]
     Dosage: UNK
  5. TOLVON [Suspect]
     Dosage: UNK
  6. ATENOLOL [Suspect]
     Dosage: UNK

REACTIONS (8)
  - BACK DISORDER [None]
  - ABDOMINAL PAIN [None]
  - EYE DISORDER [None]
  - CHEST DISCOMFORT [None]
  - INFECTION [None]
  - GENERAL PHYSICAL HEALTH DETERIORATION [None]
  - POST PROCEDURAL COMPLICATION [None]
  - LIMB INJURY [None]
